FAERS Safety Report 17205176 (Version 1)
Quarter: 2019Q4

REPORT INFORMATION
  Report Type: Spontaneous
  Country: US (occurrence: US)
  Receive Date: 20191227
  Receipt Date: 20191227
  Transmission Date: 20200122
  Serious: Yes (Hospitalization, Other)
  Sender: FDA-Public Use
  Company Number: US-EMCURE PHARMACEUTICALS LTD-2019-EPL-1215

PATIENT
  Age: 51 Year
  Sex: Female

DRUGS (5)
  1. HYDRALAZINE HYDROCHLORIDE. [Suspect]
     Active Substance: HYDRALAZINE HYDROCHLORIDE
     Indication: HYPERTENSION
     Dosage: 10 MILLIGRAM, 3 DOSE PER 1 D
     Route: 048
  2. AMLODIPINE [Concomitant]
     Active Substance: AMLODIPINE BESYLATE
     Dosage: 10 MILLIGRAM, DAILY
     Route: 048
  3. CARVEDILOL. [Concomitant]
     Active Substance: CARVEDILOL
     Dosage: 6.5 MILLIGRAM, 2 DOSE PER 1 D
     Route: 048
  4. LISINOPRIL. [Concomitant]
     Active Substance: LISINOPRIL
     Dosage: 5 MILLIGRAM, DAILY
     Route: 048
  5. ASPIRIN                            /00002701/ [Concomitant]
     Active Substance: ASPIRIN
     Dosage: 325 MILLIGRAM, DAILY
     Route: 048

REACTIONS (2)
  - Acute hepatic failure [Not Recovered/Not Resolved]
  - Autoimmune hepatitis [Not Recovered/Not Resolved]
